FAERS Safety Report 21195632 (Version 2)
Quarter: 2022Q4

REPORT INFORMATION
  Report Type: Spontaneous
  Country: US (occurrence: US)
  Receive Date: 20220810
  Receipt Date: 20221019
  Transmission Date: 20230112
  Serious: No
  Sender: FDA-Public Use
  Company Number: US-BRISTOL-MYERS SQUIBB COMPANY-2022-087632

PATIENT
  Age: 63 Year
  Sex: Male

DRUGS (1)
  1. REVLIMID [Suspect]
     Active Substance: LENALIDOMIDE
     Indication: Product used for unknown indication
     Dosage: 14 DAYS ON 7 DAYS OFF?DAILY
     Route: 048
     Dates: start: 202102

REACTIONS (3)
  - Inappropriate schedule of product administration [Unknown]
  - Epistaxis [Unknown]
  - Product dose omission issue [Unknown]
